FAERS Safety Report 8059631-2 (Version None)
Quarter: 2012Q1

REPORT INFORMATION
  Report Type: 
  Country: None (occurrence: None)
  Receive Date: 20120120
  Receipt Date: 20120111
  Transmission Date: 20120608
  Serious: Yes (Other)
  Sender: FDA-Public Use
  Company Number: PHHY2012ES002619

PATIENT
  Sex: Male

DRUGS (5)
  1. SEDOTIME [Concomitant]
  2. INDACATEROL [Suspect]
     Indication: CHRONIC OBSTRUCTIVE PULMONARY DISEASE
     Dosage: 300 UG, UNK
  3. ATROVENT [Concomitant]
  4. ALBUTEROL SULFATE AUTOHALER [Concomitant]
  5. BUDESONIDE [Concomitant]

REACTIONS (1)
  - CONVULSION [None]
